FAERS Safety Report 4784204-4 (Version None)
Quarter: 2005Q3

REPORT INFORMATION
  Report Type: 
  Country: None (occurrence: None)
  Receive Date: 20050930
  Receipt Date: 20050922
  Transmission Date: 20060218
  Serious: Yes (Hospitalization)
  Sender: FDA-Public Use
  Company Number: US-BRISTOL-MYERS SQUIBB COMPANY-13119334

PATIENT
  Age: 68 Year
  Sex: Female

DRUGS (3)
  1. CETUXIMAB [Suspect]
     Indication: NON-SMALL CELL LUNG CANCER
  2. CARBOPLATIN [Suspect]
     Indication: NON-SMALL CELL LUNG CANCER
     Dates: start: 20050831, end: 20050831
  3. TAXOL [Suspect]
     Indication: NON-SMALL CELL LUNG CANCER
     Dates: start: 20050907, end: 20050907

REACTIONS (7)
  - ANAEMIA [None]
  - ANOREXIA [None]
  - COORDINATION ABNORMAL [None]
  - DYSPNOEA [None]
  - FATIGUE [None]
  - LEUKOPENIA [None]
  - THROMBOCYTOPENIA [None]
